FAERS Safety Report 8132992-1 (Version None)
Quarter: 2012Q1

REPORT INFORMATION
  Report Type: 
  Country: None (occurrence: None)
  Receive Date: 20120213
  Receipt Date: 20120104
  Transmission Date: 20120608
  Serious: Yes (Death)
  Sender: FDA-Public Use
  Company Number: US-COVIDIEN/TYCO HEALTHCARE/MALLINCKRODT-T201200203

PATIENT
  Age: 30 Year
  Sex: Female

DRUGS (2)
  1. ANTIHISTAMINES [Suspect]
     Route: 065
  2. OXYCODONE HCL [Suspect]
     Route: 065

REACTIONS (1)
  - DEATH [None]
